FAERS Safety Report 23875286 (Version 2)
Quarter: 2024Q2

REPORT INFORMATION
  Report Type: Spontaneous
  Country: US (occurrence: US)
  Receive Date: 20240520
  Receipt Date: 20240528
  Transmission Date: 20240715
  Serious: No
  Sender: FDA-Public Use
  Company Number: US-JNJFOC-20240466292

PATIENT
  Age: 73 Year
  Sex: Male
  Weight: 54 kg

DRUGS (1)
  1. TECVAYLI [Suspect]
     Active Substance: TECLISTAMAB-CQYV
     Indication: Plasma cell myeloma
     Dosage: HIS CURRENT REGIMEN IS 95 MG WEEKLY DAY 1,8,15,22 - 28 DAY CYCLE.
     Route: 065

REACTIONS (2)
  - Blood creatine increased [Unknown]
  - Off label use [Unknown]

NARRATIVE: CASE EVENT DATE: 20240403
